FAERS Safety Report 14123002 (Version 2)
Quarter: 2017Q4

REPORT INFORMATION
  Report Type: Spontaneous
  Country: CA (occurrence: CA)
  Receive Date: 20171025
  Receipt Date: 20171129
  Transmission Date: 20180321
  Serious: Yes (Other)
  Sender: FDA-Public Use
  Company Number: CA-JNJFOC-20171019729

PATIENT
  Sex: Female

DRUGS (2)
  1. ACTONEL [Concomitant]
     Active Substance: RISEDRONATE SODIUM
     Route: 065
  2. INVOKANA [Suspect]
     Active Substance: CANAGLIFLOZIN
     Indication: GLUCOSE TOLERANCE IMPAIRED
     Route: 048
     Dates: start: 2015

REACTIONS (5)
  - Weight decreased [Unknown]
  - Alopecia [Unknown]
  - Fungal infection [Unknown]
  - Wrong technique in product usage process [Unknown]
  - Cataract [Unknown]

NARRATIVE: CASE EVENT DATE: 2015
